FAERS Safety Report 7224933 (Version 4)
Quarter: 2013Q1

REPORT INFORMATION
  Report Type: Spontaneous
  Country: US (occurrence: US)
  Receive Date: 20091221
  Receipt Date: 20130110
  Transmission Date: 20140127
  Serious: No
  Sender: FDA-Public Use
  Company Number: US-ASTRAZENECA-2009SE07054

PATIENT
  Age: 82 Year
  Sex: Female

DRUGS (3)
  1. CRESTOR [Suspect]
     Route: 048
     Dates: start: 201001
  2. CRESTOR [Suspect]
     Route: 048
  3. VIMOVO [Suspect]
     Indication: BLOOD CHOLESTEROL INCREASED
     Dosage: 500 MG NAPROXEN + 20 MG ESOMEPRAZOLE MAGNESIUM
     Route: 048

REACTIONS (9)
  - Arthritis [Unknown]
  - Mobility decreased [Unknown]
  - Limb discomfort [Unknown]
  - Muscle spasms [Unknown]
  - Muscle disorder [Unknown]
  - Malaise [Unknown]
  - Drug intolerance [Unknown]
  - Drug hypersensitivity [Unknown]
  - Off label use [Unknown]
